FAERS Safety Report 20850367 (Version 1)
Quarter: 2022Q2

REPORT INFORMATION
  Report Type: Spontaneous
  Country: US (occurrence: None)
  Receive Date: 20220518
  Receipt Date: 20220518
  Transmission Date: 20220721
  Serious: Yes (Hospitalization)
  Sender: FDA-Public Use
  Company Number: None

PATIENT
  Age: 40 Year
  Sex: Female
  Weight: 87.75 kg

DRUGS (1)
  1. .DELTA.8-TETRAHYDROCANNABINOL\HERBALS [Suspect]
     Active Substance: .DELTA.8-TETRAHYDROCANNABINOL\HERBALS
     Indication: Anxiety
     Dosage: OTHER QUANTITY : 1 GUMMY;?
     Route: 048
     Dates: start: 20220515, end: 20220515

REACTIONS (8)
  - Extra dose administered [None]
  - Loss of consciousness [None]
  - Speech disorder [None]
  - Movement disorder [None]
  - Vomiting [None]
  - Palpitations [None]
  - Toxicity to various agents [None]
  - Food poisoning [None]

NARRATIVE: CASE EVENT DATE: 20220515
